FAERS Safety Report 23277006 (Version 1)
Quarter: 2023Q4

REPORT INFORMATION
  Report Type: Spontaneous
  Country: US (occurrence: US)
  Receive Date: 20231208
  Receipt Date: 20231208
  Transmission Date: 20240110
  Serious: Yes (Hospitalization, Other)
  Sender: FDA-Public Use
  Company Number: US-drreddys-SPO/USA/23/0188087

PATIENT
  Age: 21 Year
  Sex: Female

DRUGS (3)
  1. CLOZAPINE [Suspect]
     Active Substance: CLOZAPINE
     Indication: Bipolar disorder
     Route: 048
  2. FLUOXETINE [Suspect]
     Active Substance: FLUOXETINE HYDROCHLORIDE
     Indication: Bipolar disorder
     Route: 048
  3. DIVALPROEX SODIUM [Suspect]
     Active Substance: DIVALPROEX SODIUM
     Indication: Bipolar disorder
     Route: 048

REACTIONS (5)
  - Hallucination, auditory [Unknown]
  - Gastroenteritis [Unknown]
  - Serotonin syndrome [Recovered/Resolved]
  - Intentional overdose [Recovered/Resolved]
  - Product use in unapproved indication [Unknown]
